FAERS Safety Report 4413611-4 (Version None)
Quarter: 2004Q3

REPORT INFORMATION
  Report Type: 
  Country: None (occurrence: None)
  Receive Date: 20040728
  Receipt Date: 20040713
  Transmission Date: 20050211
  Serious: Yes (Congenital Anomaly)
  Sender: FDA-Public Use
  Company Number: CA_040607081

PATIENT
  Sex: Male
  Weight: 3 kg

DRUGS (1)
  1. FLUOXETINE [Suspect]
     Dates: start: 20030624, end: 20040131

REACTIONS (3)
  - CONGENITAL SCOLIOSIS [None]
  - DRUG EXPOSURE DURING PREGNANCY [None]
  - PULMONARY HYPOPLASIA [None]
